FAERS Safety Report 18424544 (Version 4)
Quarter: 2021Q4

REPORT INFORMATION
  Report Type: Report from Study
  Country: DE (occurrence: DE)
  Receive Date: 20201026
  Receipt Date: 20211120
  Transmission Date: 20220304
  Serious: Yes (Hospitalization, Other)
  Sender: FDA-Public Use
  Company Number: DE-DESITIN-2020-02540

PATIENT
  Sex: Male

DRUGS (5)
  1. OLANZAPINE [Interacting]
     Active Substance: OLANZAPINE
     Indication: Mania
     Dosage: 7.5 MILLIGRAM, ONCE A DAY
     Route: 065
  2. FLUPENTIXOL [Interacting]
     Active Substance: FLUPENTIXOL
     Indication: Mania
     Dosage: 8 MILLIGRAM, ONCE A DAY
     Route: 065
  3. FLUPENTIXOL [Interacting]
     Active Substance: FLUPENTIXOL
     Dosage: 30 MILLIGRAM, 1 MONTH
     Route: 065
  4. VALPROIC ACID [Interacting]
     Active Substance: VALPROIC ACID
     Indication: Mania
     Dosage: 1600 MILLIGRAM, ONCE A DAY
     Route: 065
  5. VITAMIN K [Suspect]
     Active Substance: PHYTONADIONE
     Indication: Coagulopathy
     Dosage: UNK
     Route: 065

REACTIONS (4)
  - Acute hepatic failure [Unknown]
  - Drug-induced liver injury [Unknown]
  - Product use in unapproved indication [Unknown]
  - Drug interaction [Unknown]
